FAERS Safety Report 5216259-7 (Version None)
Quarter: 2007Q1

REPORT INFORMATION
  Report Type: 
  Country: None (occurrence: None)
  Receive Date: 20070123
  Receipt Date: 20070122
  Transmission Date: 20070707
  Serious: Yes (Other)
  Sender: FDA-Public Use
  Company Number: US-BOEHRINGER INGELHEIM PHARMACEUTICALS, INC.-2007-DE-00384GD

PATIENT
  Age: 86 Year
  Sex: Male
  Weight: 78.5 kg

DRUGS (9)
  1. IPRATROPIUM BROMIDE [Suspect]
     Route: 055
  2. ALBUTEROL [Suspect]
     Route: 055
  3. GATIFLOXACIN [Suspect]
     Indication: PNEUMONIA
     Route: 048
  4. METOPROLOL SUCCINATE [Suspect]
  5. PARACETAMOL [Concomitant]
  6. ASPIRIN [Concomitant]
     Dosage: 81 MG PO OR 325 MG PR
  7. HEPARIN [Concomitant]
     Route: 058
  8. DILTIAZEM HCL [Concomitant]
  9. RANITIDINE [Concomitant]
     Route: 042

REACTIONS (1)
  - HYPERGLYCAEMIA [None]
